FAERS Safety Report 23323928 (Version 1)
Quarter: 2023Q4

REPORT INFORMATION
  Report Type: Spontaneous
  Country: CN (occurrence: CN)
  Receive Date: 20231221
  Receipt Date: 20231221
  Transmission Date: 20240110
  Serious: Yes (Hospitalization)
  Sender: FDA-Public Use
  Company Number: CN-ELI_LILLY_AND_COMPANY-CN202312007432

PATIENT
  Age: 32 Year
  Sex: Female
  Weight: 42 kg

DRUGS (1)
  1. HUMALOG [Suspect]
     Active Substance: INSULIN LISPRO
     Indication: Blood glucose increased
     Dosage: 12 U, DAILY (BEFORE THREE MEALS 3U-4U-4U)
     Route: 058
     Dates: start: 20230101, end: 20231126

REACTIONS (3)
  - Decreased appetite [Recovering/Resolving]
  - Diabetes mellitus [Recovering/Resolving]
  - Hypoglycaemia [Recovering/Resolving]

NARRATIVE: CASE EVENT DATE: 20231126
